FAERS Safety Report 12682119 (Version 1)
Quarter: 2016Q3

REPORT INFORMATION
  Report Type: Other
  Country: None (occurrence: US)
  Receive Date: 20160824
  Receipt Date: 20160824
  Transmission Date: 20161109
  Serious: Yes (Other)
  Sender: FDA-Public Use
  Company Number: US-GUTHY-RENKER LLC-1056715

PATIENT
  Age: 62 Year
  Sex: Female

DRUGS (1)
  1. MEANINGFUL BEAUTY CINDY CRAWFORD ANTIOXIDANT SPF 20 UVA/UVB [Suspect]
     Active Substance: AVOBENZONE\OCTINOXATE\OCTISALATE\OXYBENZONE
     Indication: PROPHYLAXIS AGAINST SOLAR RADIATION
     Route: 061
     Dates: start: 20160101

REACTIONS (7)
  - Eye disorder [None]
  - Burning sensation [None]
  - Skin fissures [None]
  - Eye injury [Recovering/Resolving]
  - Rash macular [None]
  - Visual impairment [None]
  - Dermatitis contact [None]

NARRATIVE: CASE EVENT DATE: 20160101
